FAERS Safety Report 7078095-9 (Version None)
Quarter: 2010Q4

REPORT INFORMATION
  Report Type: 
  Country: None (occurrence: None)
  Receive Date: 20101102
  Receipt Date: 20101022
  Transmission Date: 20110411
  Serious: No
  Sender: FDA-Public Use
  Company Number: US-BIOGENIDEC-2010BI037455

PATIENT
  Age: 31 Year
  Sex: Female

DRUGS (4)
  1. TYSABRI [Suspect]
     Indication: MULTIPLE SCLEROSIS
     Route: 042
     Dates: start: 20070207, end: 20100211
  2. TYSABRI [Suspect]
     Route: 042
     Dates: start: 20100521
  3. AVONEX [Concomitant]
     Indication: MULTIPLE SCLEROSIS
     Route: 030
     Dates: start: 20040312
  4. AVONEX [Concomitant]
     Route: 030

REACTIONS (3)
  - ALOPECIA [None]
  - HYPERSENSITIVITY [None]
  - STRESS [None]
